FAERS Safety Report 7387274-2 (Version None)
Quarter: 2011Q1

REPORT INFORMATION
  Report Type: 
  Country: None (occurrence: None)
  Receive Date: 20110331
  Receipt Date: 20110325
  Transmission Date: 20110831
  Serious: Yes (Hospitalization)
  Sender: FDA-Public Use
  Company Number: IE-MEDIMMUNE-MEDI-0012989

PATIENT
  Sex: Female

DRUGS (4)
  1. SYNAGIS [Suspect]
     Route: 030
     Dates: end: 20110201
  2. SYNAGIS [Suspect]
     Route: 030
     Dates: start: 20110303
  3. ERGOCALCIFEROL [Concomitant]
  4. RETINSOL [Concomitant]

REACTIONS (2)
  - MALAISE [None]
  - BRONCHIOLITIS [None]
